FAERS Safety Report 8012810 (Version 5)
Quarter: 2013Q1

REPORT INFORMATION
  Report Type: Spontaneous
  Country: US (occurrence: US)
  Receive Date: 20110628
  Receipt Date: 20130225
  Transmission Date: 20140127
  Serious: Yes (Death, Hospitalization, Congenital Anomaly, Other)
  Sender: FDA-Public Use
  Company Number: US-PFIZER INC-2011139942

PATIENT
  Age: 2 Day
  Sex: Female
  Weight: 2.9 kg

DRUGS (13)
  1. ZOLOFT [Suspect]
     Indication: DEPRESSION
     Dosage: 50 MG, 1X/DAY
     Route: 064
     Dates: start: 20030219, end: 200305
  2. LEXAPRO [Suspect]
     Indication: DEPRESSION
     Dosage: UNK
     Route: 064
     Dates: start: 2003, end: 2003
  3. HYDROXYZINE [Concomitant]
     Dosage: UNK
     Route: 064
  4. AMOXIL [Concomitant]
     Dosage: UNK
     Route: 064
  5. CHROMAGEN OB [Concomitant]
     Dosage: UNK
     Route: 064
  6. NAPROXEN SODIUM S [Concomitant]
     Dosage: UNK
     Route: 064
  7. NISTATIN [Concomitant]
     Dosage: UNK
     Route: 064
  8. DULCOLAX [Concomitant]
     Dosage: UNK
     Route: 064
  9. SERAX [Concomitant]
     Dosage: 15 MG, 1X/DAY
     Route: 064
  10. PROMETHAZINE [Concomitant]
     Dosage: UNK
     Route: 064
  11. HYDROCODONE W/ACETAMINOPHEN [Concomitant]
     Dosage: UNK
     Route: 064
  12. ORTHO TRI CYCLEN [Concomitant]
     Dosage: UNK
     Route: 064
  13. PALGIC DS [Concomitant]
     Dosage: UNK
     Route: 064

REACTIONS (13)
  - Foetal exposure during pregnancy [Fatal]
  - Aortic stenosis [Fatal]
  - Left ventricular dysfunction [Fatal]
  - Left ventricular failure [Fatal]
  - Patent ductus arteriosus [Unknown]
  - Pulmonary valve stenosis [Unknown]
  - Pulmonary valve incompetence [Unknown]
  - Intracranial venous sinus thrombosis [Recovered/Resolved]
  - Endocarditis [Unknown]
  - Mediastinal haemorrhage [Unknown]
  - Extracorporeal membrane oxygenation [Unknown]
  - Aortic valve disease mixed [Unknown]
  - Bicuspid aortic valve [Unknown]
